FAERS Safety Report 4563241-9 (Version None)
Quarter: 2005Q1

REPORT INFORMATION
  Report Type: 
  Country: None (occurrence: None)
  Receive Date: 20050128
  Receipt Date: 20050118
  Transmission Date: 20050727
  Serious: Yes (Death, Life-Threatening, Hospitalization, Disabling)
  Sender: FDA-Public Use
  Company Number: 200510119EU

PATIENT
  Age: 64 Year
  Sex: Male

DRUGS (7)
  1. DOCETAXEL [Suspect]
     Indication: OESOPHAGEAL CARCINOMA
     Route: 042
     Dates: start: 20040429, end: 20040712
  2. CISPLATIN [Suspect]
     Indication: OESOPHAGEAL CARCINOMA
     Route: 042
     Dates: start: 20040429, end: 20040712
  3. RADIOTHERAPY [Concomitant]
     Indication: OESOPHAGEAL CARCINOMA
     Dosage: DOSE: 1.8 GY
     Dates: start: 20040614, end: 20040716
  4. PANTOPRAZOLE [Concomitant]
     Route: 048
     Dates: start: 20041220
  5. ROCEPHIN [Concomitant]
     Route: 042
     Dates: start: 20050107
  6. TIENAM [Concomitant]
     Route: 042
     Dates: start: 20050110
  7. AMOXICILLIN [Concomitant]
     Route: 042
     Dates: start: 20041220

REACTIONS (10)
  - CHOLESTASIS [None]
  - GASTRIC HYPOMOTILITY [None]
  - MALIGNANT NEOPLASM PROGRESSION [None]
  - PNEUMONIA ASPIRATION [None]
  - POSTRENAL FAILURE [None]
  - REGURGITATION OF FOOD [None]
  - TACHYCARDIA [None]
  - THERAPY NON-RESPONDER [None]
  - VENTRICULAR FIBRILLATION [None]
  - WEIGHT DECREASED [None]
